FAERS Safety Report 7378277-2 (Version None)
Quarter: 2011Q1

REPORT INFORMATION
  Report Type: 
  Country: None (occurrence: None)
  Receive Date: 20110328
  Receipt Date: 20110318
  Transmission Date: 20110831
  Serious: Yes (Hospitalization)
  Sender: FDA-Public Use
  Company Number: FR-ASTRAZENECA-2011SE15677

PATIENT
  Sex: Female

DRUGS (9)
  1. LERCANIDIPINE [Concomitant]
     Route: 048
  2. ALLOPURINOL [Concomitant]
  3. LANTUS [Concomitant]
     Route: 030
  4. GLICLAZIDE [Concomitant]
     Route: 048
  5. GLUCOR [Concomitant]
     Route: 048
  6. ARIMIDEX [Suspect]
     Indication: BREAST CANCER
     Route: 048
     Dates: start: 20110120, end: 20110205
  7. PANTOPRAZOLE [Concomitant]
  8. BROMAZEPAM [Concomitant]
     Route: 048
  9. TRAMADOL [Concomitant]
     Route: 048

REACTIONS (3)
  - ABDOMINAL PAIN [None]
  - VASCULAR PURPURA [None]
  - ARTHRALGIA [None]
